FAERS Safety Report 4973974-8 (Version None)
Quarter: 2006Q2

REPORT INFORMATION
  Report Type: 
  Country: None (occurrence: None)
  Receive Date: 20060410
  Receipt Date: 20060329
  Transmission Date: 20061013
  Serious: Yes (Other)
  Sender: FDA-Public Use
  Company Number: 2006043482

PATIENT
  Sex: Male
  Weight: 63.5036 kg

DRUGS (7)
  1. NEURONTIN [Suspect]
     Indication: BACK PAIN
     Dosage: 500  MG (300 MG, 3 IN 1 D)
  2. ALL OTHER THERAPEUTIC PRODUCTS (ALL OTHER THERAPEUTIC PRODUCTS) [Suspect]
     Indication: ILL-DEFINED DISORDER
  3. CARDIZEM [Concomitant]
  4. ASPIRIN [Concomitant]
  5. COREG [Concomitant]
  6. GLUCOPHAGE [Concomitant]
  7. TEMAZEPAM [Concomitant]

REACTIONS (8)
  - ABASIA [None]
  - ARTERIAL OCCLUSIVE DISEASE [None]
  - BACK DISORDER [None]
  - BLOOD PRESSURE INADEQUATELY CONTROLLED [None]
  - DIABETIC NEUROPATHY [None]
  - FALL [None]
  - MEMORY IMPAIRMENT [None]
  - NERVE COMPRESSION [None]
